FAERS Safety Report 9767292 (Version 1)
Quarter: 2013Q4

REPORT INFORMATION
  Report Type: Spontaneous
  Country: US (occurrence: None)
  Receive Date: 20131216
  Receipt Date: 20131216
  Transmission Date: 20140711
  Serious: Yes (Hospitalization)
  Sender: FDA-Public Use
  Company Number: None

PATIENT
  Age: 60 Year
  Sex: Male
  Weight: 100.9 kg

DRUGS (4)
  1. HYDROCHLOROTHIAZIDE [Suspect]
     Indication: HYPERTENSION
     Route: 048
     Dates: start: 20130807, end: 20131212
  2. ONDANSETRON [Suspect]
     Route: 042
  3. LEVOFLOXACIN [Suspect]
     Route: 042
  4. METRONIDAZOLE [Suspect]
     Route: 042

REACTIONS (1)
  - Pancreatitis acute [None]
